FAERS Safety Report 8556627-9 (Version None)
Quarter: 2012Q3

REPORT INFORMATION
  Report Type: 
  Country: None (occurrence: None)
  Receive Date: 20120801
  Receipt Date: 20120723
  Transmission Date: 20120928
  Serious: Yes (Hospitalization)
  Sender: FDA-Public Use
  Company Number: FR-BRISTOL-MYERS SQUIBB COMPANY-16793853

PATIENT
  Age: 61 Year
  Sex: Female

DRUGS (14)
  1. ARANESP [Suspect]
     Route: 058
  2. BRONCHODUAL [Concomitant]
  3. REPAGLINIDE [Concomitant]
  4. RENAGEL [Concomitant]
  5. IRBESARTAN [Concomitant]
  6. AMLODIPINE BESYLATE [Concomitant]
  7. SEROQUEL [Suspect]
     Route: 048
  8. OMEPRAZOLE [Concomitant]
  9. ASPIRIN [Concomitant]
  10. ABILIFY [Suspect]
     Route: 048
  11. HALDOL [Suspect]
     Route: 048
  12. SODIUM BICARBONATE [Concomitant]
  13. LASIX [Concomitant]
  14. SPIRIVA [Concomitant]

REACTIONS (1)
  - PULMONARY EMBOLISM [None]
